FAERS Safety Report 8121191-5 (Version None)
Quarter: 2012Q1

REPORT INFORMATION
  Report Type: 
  Country: None (occurrence: None)
  Receive Date: 20120208
  Receipt Date: 20120125
  Transmission Date: 20120608
  Serious: No
  Sender: FDA-Public Use
  Company Number: DE-BRISTOL-MYERS SQUIBB COMPANY-16370785

PATIENT
  Age: 57 Year
  Sex: Male

DRUGS (3)
  1. SAQUINAVIR [Suspect]
  2. ATAZANAVIR [Suspect]
     Dates: start: 20050301
  3. RITONAVIR [Suspect]
     Dates: start: 20050301

REACTIONS (3)
  - PERSONALITY DISORDER [None]
  - INGUINAL HERNIA [None]
  - POLYNEUROPATHY [None]
